FAERS Safety Report 8561800-X (Version None)
Quarter: 2012Q3

REPORT INFORMATION
  Report Type: 
  Country: None (occurrence: None)
  Receive Date: 20120802
  Receipt Date: 20120718
  Transmission Date: 20120928
  Serious: Yes (Other)
  Sender: FDA-Public Use
  Company Number: CHPA2012US016133

PATIENT
  Age: 89 Year
  Sex: Female

DRUGS (5)
  1. MYOFLEX ANALGESIC CREME [Suspect]
     Indication: ARTHRALGIA
     Dosage: UNK, QD
     Route: 061
  2. MYOFLEX ANALGESIC CREME [Suspect]
     Dosage: UNK, ON AND OFF
     Route: 061
  3. IBUPROFEN (ADVIL) [Concomitant]
     Dosage: UNK, UNK
  4. DRUG THERAPY NOS [Concomitant]
     Indication: ARTHRALGIA
     Dosage: UNK, UNK
  5. TYLENOL (CAPLET) [Concomitant]
     Dosage: UNK, EVERY NIGHT

REACTIONS (2)
  - DRUG DEPENDENCE [None]
  - INCORRECT DRUG ADMINISTRATION DURATION [None]
